FAERS Safety Report 21747668 (Version 2)
Quarter: 2023Q1

REPORT INFORMATION
  Report Type: Other
  Country: US (occurrence: US)
  Receive Date: 20221219
  Receipt Date: 20230130
  Transmission Date: 20230418
  Serious: Yes (Other)
  Sender: FDA-Public Use
  Company Number: US-Covis Pharma GmbH-2022COV22721

PATIENT
  Age: 34 Year
  Sex: Female
  Weight: 75.818 kg

DRUGS (3)
  1. MAKENA [Suspect]
     Active Substance: HYDROXYPROGESTERONE CAPROATE
     Indication: Premature delivery
     Route: 058
     Dates: start: 20221025, end: 20221025
  2. prenatal vits [Concomitant]
     Indication: Product used for unknown indication
  3. MACROBID [Concomitant]
     Active Substance: NITROFURANTOIN\NITROFURANTOIN MONOHYDRATE
     Indication: Product used for unknown indication
     Dosage: 100MG PO BID X 7 DAYS #14
     Dates: start: 20221021, end: 20221028

REACTIONS (4)
  - Syncope [Recovered/Resolved]
  - Blood pressure decreased [Recovered/Resolved]
  - Somnolence [Recovered/Resolved]
  - Dizziness [Unknown]

NARRATIVE: CASE EVENT DATE: 20221025
